FAERS Safety Report 6537177-8 (Version None)
Quarter: 2010Q1

REPORT INFORMATION
  Report Type: 
  Country: None (occurrence: None)
  Receive Date: 20100108
  Receipt Date: 20091217
  Transmission Date: 20100710
  Serious: Yes (Hospitalization)
  Sender: FDA-Public Use
  Company Number: 2009AL007932

PATIENT
  Age: 78 Year
  Sex: Female

DRUGS (4)
  1. CARBIDOPA + LEVODOPA [Suspect]
     Indication: PARKINSON'S DISEASE
     Dosage: 687.5 MG; QD;
     Dates: start: 20040301
  2. FERROUS SULFATE TAB [Concomitant]
  3. CITALOPRAM HYDROBROMIDE [Concomitant]
  4. ACETYLSALICYLIC ACID [Concomitant]

REACTIONS (10)
  - BLOOD IRON DECREASED [None]
  - CONDITION AGGRAVATED [None]
  - DEHYDRATION [None]
  - DRUG INTERACTION [None]
  - ESCHERICHIA INFECTION [None]
  - GENERAL PHYSICAL HEALTH DETERIORATION [None]
  - HYPOPHAGIA [None]
  - MOUTH ULCERATION [None]
  - ORAL DISORDER [None]
  - PARKINSON'S DISEASE [None]
